FAERS Safety Report 4492765-8 (Version None)
Quarter: 2004Q4

REPORT INFORMATION
  Report Type: 
  Country: None (occurrence: None)
  Receive Date: 20041102
  Receipt Date: 20041020
  Transmission Date: 20050328
  Serious: Yes (Hospitalization)
  Sender: FDA-Public Use
  Company Number: B0348838A

PATIENT
  Sex: Male
  Weight: 13.4 kg

DRUGS (1)
  1. AUGMENTIN '125' [Suspect]
     Indication: URINARY TRACT INFECTION
     Dosage: 6 UNIT/TWICE PER DAY/ORAL
     Route: 048
     Dates: start: 20040610, end: 20040620

REACTIONS (15)
  - AMINOACIDURIA [None]
  - BLOOD PH DECREASED [None]
  - CYANOSIS NEONATAL [None]
  - DYSPNOEA [None]
  - GRAND MAL CONVULSION [None]
  - HEPATOMEGALY [None]
  - HYPOTONIA NEONATAL [None]
  - MALAISE [None]
  - NEONATAL DISORDER [None]
  - NEONATAL HYPONATRAEMIA [None]
  - PCO2 INCREASED [None]
  - POLYDIPSIA [None]
  - POLYURIA [None]
  - RENAL TUBULAR DISORDER [None]
  - RHINORRHOEA [None]
